FAERS Safety Report 5282410-6 (Version None)
Quarter: 2007Q1

REPORT INFORMATION
  Report Type: 
  Country: None (occurrence: None)
  Receive Date: 20070326
  Receipt Date: 20070308
  Transmission Date: 20070707
  Serious: Yes (Life-Threatening, Hospitalization, Disabling, Other)
  Sender: FDA-Public Use
  Company Number: 2006EU002461

PATIENT
  Age: 57 Year
  Sex: Male
  Weight: 54 kg

DRUGS (13)
  1. PROGRAF [Suspect]
     Indication: RENAL TRANSPLANT
     Dosage: SEE IMAGE
     Route: 048
     Dates: start: 20060529, end: 20060807
  2. PROGRAF [Suspect]
     Indication: RENAL TRANSPLANT
     Dosage: SEE IMAGE
     Route: 048
     Dates: start: 20060808, end: 20060905
  3. BACTRIM DS [Suspect]
     Indication: PNEUMOCYSTIS JIROVECI PNEUMONIA
     Dosage: 1 DF, 3XWEEKLY, ORAL
     Route: 048
     Dates: end: 20060803
  4. KARDEGIC (ACETYLSALICYLATE LYSINE) [Concomitant]
  5. OMEPRAZOLE [Concomitant]
  6. LASIX [Concomitant]
  7. CELLCEPT [Concomitant]
  8. CORTICOSTEROIDS [Concomitant]
  9. NOVONORM (REPAGLINIDE) [Concomitant]
  10. AMLODIPINE BESYLATE [Concomitant]
  11. ASPEGIC 1000 [Concomitant]
  12. PREDNISONE [Concomitant]
  13. ZELITREX(VALCICLOVIR HYDROCHLORIDE) [Concomitant]

REACTIONS (8)
  - BRONCHITIS CHRONIC [None]
  - INTERSTITIAL LUNG DISEASE [None]
  - OBLITERATIVE BRONCHIOLITIS [None]
  - OVERDOSE [None]
  - PSEUDOMONAS INFECTION [None]
  - PULMONARY HYPERTENSION [None]
  - PYREXIA [None]
  - TACHYCARDIA [None]
